FAERS Safety Report 22394520 (Version 1)
Quarter: 2023Q2

REPORT INFORMATION
  Report Type: Spontaneous
  Country: US (occurrence: None)
  Receive Date: 20230531
  Receipt Date: 20230531
  Transmission Date: 20230722
  Serious: Yes (Other)
  Sender: FDA-Public Use
  Company Number: None

PATIENT
  Age: 38 Year
  Sex: Female
  Weight: 82.35 kg

DRUGS (7)
  1. BUPROPION [Suspect]
     Active Substance: BUPROPION
     Indication: Attention deficit hyperactivity disorder
     Dates: start: 20230527, end: 20230529
  2. BUPROPION [Suspect]
     Active Substance: BUPROPION
     Indication: Anxiety
  3. BUPROPION [Suspect]
     Active Substance: BUPROPION
     Indication: Stress
  4. LEXAPRO [Concomitant]
     Active Substance: ESCITALOPRAM OXALATE
  5. AMLODIPINE [Concomitant]
     Active Substance: AMLODIPINE BESYLATE
  6. norithdrone [Concomitant]
  7. SUGAR BEAR HAIR VITAMINS [Concomitant]

REACTIONS (5)
  - Lymphadenopathy [None]
  - Headache [None]
  - Musculoskeletal stiffness [None]
  - Musculoskeletal stiffness [None]
  - Pain [None]

NARRATIVE: CASE EVENT DATE: 20230529
